FAERS Safety Report 9306801 (Version 1)
Quarter: 2013Q2

REPORT INFORMATION
  Report Type: Spontaneous
  Country: US (occurrence: US)
  Receive Date: 20130523
  Receipt Date: 20130523
  Transmission Date: 20140414
  Serious: Yes (Other)
  Sender: FDA-Public Use
  Company Number: US-US-EMD SERONO, INC.-7024079

PATIENT
  Age: 50 Year
  Sex: Female

DRUGS (4)
  1. REBIF [Suspect]
     Indication: PRODUCT USED FOR UNKNOWN INDICATION
     Route: 058
     Dates: start: 20100407
  2. REBIF [Suspect]
     Route: 057
  3. REBIF [Suspect]
     Route: 057
     Dates: start: 20101020
  4. ALEVE [Concomitant]
     Indication: PREMEDICATION

REACTIONS (3)
  - Large intestine polyp [Recovered/Resolved]
  - Influenza like illness [Unknown]
  - Liver function test abnormal [Unknown]
